FAERS Safety Report 5531727-6 (Version None)
Quarter: 2007Q4

REPORT INFORMATION
  Report Type: 
  Country: None (occurrence: None)
  Receive Date: 20071128
  Receipt Date: 20071113
  Transmission Date: 20080405
  Serious: Yes (Death)
  Sender: FDA-Public Use
  Company Number: 2007S1011687

PATIENT
  Sex: Female

DRUGS (2)
  1. DUONEB [Suspect]
  2. DUONEB [Suspect]

REACTIONS (1)
  - COMPLETED SUICIDE [None]
